FAERS Safety Report 17150385 (Version 2)
Quarter: 2019Q4

REPORT INFORMATION
  Report Type: Spontaneous
  Country: JP (occurrence: JP)
  Receive Date: 20191213
  Receipt Date: 20191226
  Transmission Date: 20200122
  Serious: Yes (Hospitalization, Other)
  Sender: FDA-Public Use
  Company Number: JP-GLAXOSMITHKLINE-JP2019JPN224097

PATIENT
  Age: 22 Year
  Sex: Female

DRUGS (2)
  1. LAMICTAL [Suspect]
     Active Substance: LAMOTRIGINE
     Indication: EPILEPSY
     Dosage: UNK
     Route: 048
  2. LOXONIN [Concomitant]
     Active Substance: LOXOPROFEN SODIUM
     Dosage: UNK

REACTIONS (9)
  - Erythema [Unknown]
  - Hepatic function abnormal [Unknown]
  - Skin exfoliation [Unknown]
  - Lymphadenopathy [Unknown]
  - Toxic epidermal necrolysis [Unknown]
  - Rash [Unknown]
  - Pyrexia [Unknown]
  - Swelling face [Unknown]
  - Face oedema [Unknown]
